FAERS Safety Report 14236791 (Version 3)
Quarter: 2017Q4

REPORT INFORMATION
  Report Type: Report from Study
  Country: SE (occurrence: SE)
  Receive Date: 20171129
  Receipt Date: 20171207
  Transmission Date: 20180321
  Serious: Yes (Hospitalization)
  Sender: FDA-Public Use
  Company Number: SE-B.I. PHARMACEUTICALS,INC./RIDGEFIELD-2017-BI-063418

PATIENT
  Age: 78 Year
  Sex: Female
  Weight: 69 kg

DRUGS (3)
  1. BLINDED NINTEDANIB [Suspect]
     Active Substance: NINTEDANIB
     Indication: ENDOMETRIAL CANCER
     Route: 048
     Dates: start: 20170504
  2. APIXABAN [Suspect]
     Active Substance: APIXABAN
     Indication: CARDIAC FIBRILLATION
     Route: 065
     Dates: end: 20171024
  3. TINZAPARIN [Concomitant]
     Active Substance: TINZAPARIN
     Indication: CARDIAC FIBRILLATION
     Dosage: UNIT DOSE: 4500 IE
     Route: 065
     Dates: start: 20171024

REACTIONS (1)
  - Haematuria [Recovered/Resolved]

NARRATIVE: CASE EVENT DATE: 20171025
